FAERS Safety Report 5401410-6 (Version None)
Quarter: 2007Q3

REPORT INFORMATION
  Report Type: 
  Country: None (occurrence: None)
  Receive Date: 20070731
  Receipt Date: 20070720
  Transmission Date: 20080115
  Serious: Yes (Death, Hospitalization)
  Sender: FDA-Public Use
  Company Number: US-GENENTECH-237821

PATIENT
  Sex: Female
  Weight: 66 kg

DRUGS (2)
  1. BEVACIZUMAB [Suspect]
     Indication: SMALL CELL LUNG CANCER STAGE UNSPECIFIED
     Dosage: 670 MG, DAYS 1+15
     Route: 042
     Dates: start: 20070115
  2. PACLITAXEL [Suspect]
     Indication: SMALL CELL LUNG CANCER STAGE UNSPECIFIED
     Dosage: 113 MG, DAYS1,8,15
     Route: 042
     Dates: start: 20070115

REACTIONS (1)
  - SUDDEN DEATH [None]
